FAERS Safety Report 5031095-2 (Version None)
Quarter: 2006Q2

REPORT INFORMATION
  Report Type: 
  Country: None (occurrence: None)
  Receive Date: 20060619
  Receipt Date: 20060619
  Transmission Date: 20061013
  Serious: Yes (Life-Threatening, Hospitalization)
  Sender: FDA-Public Use
  Company Number: None

PATIENT
  Sex: Male
  Weight: 88.4514 kg

DRUGS (1)
  1. CELEXA [Suspect]
     Indication: DEPRESSION
     Dosage: 20 MG PER DAY PO
     Route: 048
     Dates: start: 20060322, end: 20060614

REACTIONS (5)
  - AGGRESSION [None]
  - DEPRESSION [None]
  - LIBIDO INCREASED [None]
  - MOOD SWINGS [None]
  - SUICIDE ATTEMPT [None]
